FAERS Safety Report 5576997-3 (Version None)
Quarter: 2007Q4

REPORT INFORMATION
  Report Type: 
  Country: None (occurrence: None)
  Receive Date: 20071228
  Receipt Date: 20071219
  Transmission Date: 20080405
  Serious: Yes (Hospitalization, Other)
  Sender: FDA-Public Use
  Company Number: AT-ABBOTT-07P-009-0430776-00

PATIENT
  Sex: Female
  Weight: 66 kg

DRUGS (8)
  1. HUMIRA [Suspect]
     Indication: POLYARTHRITIS
     Route: 058
     Dates: start: 20070901, end: 20071101
  2. EBETREXAT [Concomitant]
     Indication: POLYARTHRITIS
     Route: 030
     Dates: start: 20020101
  3. SERACTIL FORTE [Concomitant]
     Indication: DRUG USE FOR UNKNOWN INDICATION
  4. RISEDRONATE SODIUM [Concomitant]
     Indication: DRUG USE FOR UNKNOWN INDICATION
  5. CAL D OR [Concomitant]
     Indication: DRUG USE FOR UNKNOWN INDICATION
  6. MAGNONORM [Concomitant]
     Indication: DRUG USE FOR UNKNOWN INDICATION
  7. SIMVASTATIN [Concomitant]
     Indication: DRUG USE FOR UNKNOWN INDICATION
     Dosage: 0/0/1 (UNIT DOSE)
  8. PRAZEPAM [Concomitant]
     Indication: DRUG USE FOR UNKNOWN INDICATION
     Dosage: O,5/0/1 (UNIT DOSE)

REACTIONS (1)
  - FOLLICULAR THYROID CANCER [None]
